FAERS Safety Report 23847934 (Version 1)
Quarter: 2024Q2

REPORT INFORMATION
  Report Type: Report from Study
  Country: US (occurrence: US)
  Receive Date: 20240513
  Receipt Date: 20240513
  Transmission Date: 20240716
  Serious: Yes (Death)
  Sender: FDA-Public Use
  Company Number: US-PFIZER INC-PV202400060426

PATIENT

DRUGS (3)
  1. GEMCITABINE HYDROCHLORIDE [Suspect]
     Active Substance: GEMCITABINE HYDROCHLORIDE
     Indication: Ductal adenocarcinoma of pancreas
     Dosage: ON DAYS 1, 8, AND 15 OF A 28-DAY CYCLE
     Route: 042
  2. PACLITAXEL [Concomitant]
     Active Substance: PACLITAXEL
     Indication: Ductal adenocarcinoma of pancreas
     Dosage: ON DAYS 1, 8, AND 15 OF A 28-DAY CYCLE
     Route: 042
  3. OLARATUMAB [Concomitant]
     Active Substance: OLARATUMAB
     Indication: Ductal adenocarcinoma of pancreas
     Dosage: ON DAYS 1, 8, AND 15 OF A 28-DAY CYCLE
     Route: 042

REACTIONS (1)
  - Confusional state [Fatal]
